FAERS Safety Report 7617760-9 (Version None)
Quarter: 2011Q3

REPORT INFORMATION
  Report Type: 
  Country: None (occurrence: None)
  Receive Date: 20110718
  Receipt Date: 20110711
  Transmission Date: 20111222
  Serious: Yes (Life-Threatening)
  Sender: FDA-Public Use
  Company Number: JP-JNJFOC-20110600955

PATIENT
  Sex: Female

DRUGS (3)
  1. FLUNITRAZEPAM [Suspect]
     Indication: SCHIZOPHRENIA
     Route: 048
     Dates: start: 20100918
  2. INVEGA [Suspect]
     Indication: SCHIZOPHRENIA
     Route: 048
     Dates: start: 20110309, end: 20110506
  3. ZYPREXA [Suspect]
     Indication: SCHIZOPHRENIA
     Route: 048
     Dates: start: 20100918, end: 20110506

REACTIONS (1)
  - RHABDOMYOLYSIS [None]
